FAERS Safety Report 6187261-6 (Version None)
Quarter: 2009Q2

REPORT INFORMATION
  Report Type: 
  Country: None (occurrence: None)
  Receive Date: 20090512
  Receipt Date: 20090427
  Transmission Date: 20091009
  Serious: Yes (Other)
  Sender: FDA-Public Use
  Company Number: PHHO2006US22071

PATIENT
  Sex: Male
  Weight: 111.8 kg

DRUGS (2)
  1. CIBADREX T29368+ [Suspect]
     Indication: HYPERTENSION
     Dosage: LEVEL 1
     Route: 048
     Dates: start: 20060503
  2. CIBADREX T29368+ [Suspect]
     Dosage: UNKNOWN
     Route: 048
     Dates: end: 20061229

REACTIONS (6)
  - ABDOMINAL PAIN UPPER [None]
  - BLOOD MAGNESIUM DECREASED [None]
  - DIARRHOEA [None]
  - HYPOTENSION [None]
  - LOSS OF CONSCIOUSNESS [None]
  - SYNCOPE [None]
